FAERS Safety Report 4523076-X (Version None)
Quarter: 2004Q4

REPORT INFORMATION
  Report Type: 
  Country: None (occurrence: None)
  Receive Date: 20041210
  Receipt Date: 20041025
  Transmission Date: 20050328
  Serious: Yes (Death, Life-Threatening, Hospitalization, Other)
  Sender: FDA-Public Use
  Company Number: PHFR2004GB03989

PATIENT
  Age: 59 Year
  Sex: Male

DRUGS (3)
  1. PHENYTOIN [Suspect]
     Indication: CONVULSION
     Route: 048
     Dates: start: 20040101, end: 20040201
  2. DEXAMETHASONE [Concomitant]
  3. TEGRETOL [Suspect]
     Indication: PARTIAL SEIZURES
     Dosage: UNK, UNK
     Route: 048
     Dates: start: 20040201, end: 20040729

REACTIONS (11)
  - ANAEMIA [None]
  - APLASTIC ANAEMIA [None]
  - HAEMOGLOBIN DECREASED [None]
  - KLEBSIELLA SEPSIS [None]
  - NEUTROPHIL COUNT DECREASED [None]
  - PLATELET COUNT DECREASED [None]
  - PYREXIA [None]
  - RASH [None]
  - SKIN INFECTION [None]
  - STAPHYLOCOCCAL SEPSIS [None]
  - WHITE BLOOD CELL COUNT DECREASED [None]
